FAERS Safety Report 25940418 (Version 3)
Quarter: 2025Q4

REPORT INFORMATION
  Report Type: Spontaneous
  Country: EG (occurrence: EG)
  Receive Date: 20251020
  Receipt Date: 20251203
  Transmission Date: 20260117
  Serious: Yes (Life-Threatening, Other)
  Sender: NOVO NORDISK
  Company Number: EG-NOVOPROD-1542052

PATIENT
  Age: 541 Month
  Sex: Female
  Weight: 100 kg

DRUGS (6)
  1. TEMPORAL [Concomitant]
     Indication: Dizziness
     Dosage: UNK ONCE DAILY
     Route: 048
  2. FENOFIBRATE [Concomitant]
     Active Substance: FENOFIBRATE
     Indication: Lipids abnormal
     Dosage: UNK ONCE
     Route: 048
  3. INSULIN HUMAN [Suspect]
     Active Substance: INSULIN HUMAN
     Indication: Diabetes mellitus
     Dosage: 60 IU, QD (40U AT MORNING/20U AT NIGHT) (5 YEARS AGO)
     Route: 058
  4. EZOGAST [Concomitant]
     Indication: Gastrointestinal disorder
     Dosage: UNK ONCE BEFORE LUNCH
     Route: 048
  5. EMPACOZA [Concomitant]
     Indication: Diabetes mellitus
     Dosage: UNK ONCE DAILY AFTER LUNCH
     Route: 048
  6. ASPIRIN [Concomitant]
     Active Substance: ASPIRIN
     Indication: Anticoagulant therapy
     Dosage: UNK ONCE DAILY
     Route: 048

REACTIONS (4)
  - Diabetic coma [Recovered/Resolved]
  - Device failure [Recovered/Resolved]
  - Drug dose omission by device [Recovered/Resolved]
  - Wrong technique in product usage process [Recovered/Resolved]
